FAERS Safety Report 6236443-3 (Version None)
Quarter: 2009Q2

REPORT INFORMATION
  Report Type: 
  Country: None (occurrence: None)
  Receive Date: 20090619
  Receipt Date: 20090611
  Transmission Date: 20091009
  Serious: Yes (Death, Life-Threatening, Hospitalization, Other)
  Sender: FDA-Public Use
  Company Number: JP-PFIZER INC-2009212861

PATIENT
  Age: 79 Year

DRUGS (12)
  1. NORVASC [Suspect]
     Indication: HYPERTENSION
     Dosage: 10 MG, 1X/DAY
     Route: 048
     Dates: start: 20090324, end: 20090506
  2. NORVASC [Suspect]
     Dosage: 10 MG, 1X/DAY
     Route: 048
     Dates: start: 20090324, end: 20090505
  3. CARDENALIN [Concomitant]
     Dosage: UNK
     Route: 048
     Dates: start: 20080911, end: 20090506
  4. LASIX [Concomitant]
     Dosage: UNK
     Route: 048
     Dates: start: 20080905, end: 20090506
  5. ASPIRIN [Concomitant]
     Dosage: UNK
     Route: 048
     Dates: start: 20080918, end: 20090506
  6. PARIET [Concomitant]
     Dosage: UNK
     Route: 048
     Dates: start: 20080918, end: 20090506
  7. FERROUS CITRATE [Concomitant]
     Dosage: UNK
     Route: 048
     Dates: start: 20080918, end: 20090506
  8. NEUFAN [Concomitant]
     Dosage: UNK
     Dates: start: 20090324, end: 20090506
  9. LIPITOR [Concomitant]
     Dosage: UNK
     Route: 048
     Dates: start: 20080416, end: 20090506
  10. LEVOTOMIN [Concomitant]
     Dosage: UNK
     Route: 048
     Dates: start: 20081001, end: 20090506
  11. GLUCOBAY [Concomitant]
     Dosage: UNK
     Route: 048
     Dates: start: 20090323, end: 20090506
  12. SODIUM PICOSULFATE [Concomitant]
     Route: 048
     Dates: start: 20081203, end: 20090506

REACTIONS (3)
  - AZOTAEMIA [None]
  - CARDIAC FAILURE [None]
  - SINUS ARREST [None]
